FAERS Safety Report 20359492 (Version 1)
Quarter: 2022Q1

REPORT INFORMATION
  Report Type: Spontaneous
  Country: DE (occurrence: None)
  Receive Date: 20220121
  Receipt Date: 20220121
  Transmission Date: 20220424
  Serious: Yes (Hospitalization)
  Sender: FDA-Public Use
  Company Number: DE-ROCHE-2999981

PATIENT
  Age: 0 Year
  Sex: Male

DRUGS (6)
  1. TOCILIZUMAB [Suspect]
     Active Substance: TOCILIZUMAB
     Indication: Product used for unknown indication
     Dosage: PRIOR TO CONCEPTION AND DURING FIRST TRIMESTER OF PREGNANCY
     Route: 065
     Dates: start: 201909, end: 202011
  2. TOCILIZUMAB [Suspect]
     Active Substance: TOCILIZUMAB
     Dosage: FIRST 480 MG, THEN 400 MG, FIRST TRIMESTER OF PREGNANCY
     Route: 064
     Dates: start: 202012, end: 202101
  3. TOCILIZUMAB [Suspect]
     Active Substance: TOCILIZUMAB
     Dosage: SECOND TRIMESTER OF PREGNANCY
     Route: 064
     Dates: start: 20210129
  4. TOCILIZUMAB [Suspect]
     Active Substance: TOCILIZUMAB
     Dosage: 16TH WEEK OF PREGNANCY
     Route: 064
     Dates: start: 20210212
  5. TOCILIZUMAB [Suspect]
     Active Substance: TOCILIZUMAB
     Dosage: 18TH WEEK OF PREGNANCY
     Route: 064
     Dates: start: 20210226
  6. TOCILIZUMAB [Suspect]
     Active Substance: TOCILIZUMAB
     Dosage: FIRST 480 MG, THEN 400 MG, FIRST TRIMESTER OF PREGNANCY
     Route: 064
     Dates: start: 202012, end: 202101

REACTIONS (1)
  - Anal abscess [Recovered/Resolved]

NARRATIVE: CASE EVENT DATE: 20210801
